FAERS Safety Report 5450926-5 (Version None)
Quarter: 2007Q3

REPORT INFORMATION
  Report Type: 
  Country: None (occurrence: None)
  Receive Date: 20070911
  Receipt Date: 20070830
  Transmission Date: 20080115
  Serious: Yes (Life-Threatening, Other)
  Sender: FDA-Public Use
  Company Number: 237311K07USA

PATIENT
  Age: 52 Year
  Sex: Female
  Weight: 60.782 kg

DRUGS (4)
  1. REBIF [Suspect]
     Indication: MULTIPLE SCLEROSIS
     Dosage: 44 MCG, 3 IN 1 WEEKS, SUBCUTANEOUS
     Route: 058
     Dates: start: 20031029
  2. BACLOFEN [Concomitant]
  3. TIZANIDINE HCL [Concomitant]
  4. SYNTHROID [Concomitant]

REACTIONS (4)
  - CONDITION AGGRAVATED [None]
  - DEEP VEIN THROMBOSIS [None]
  - MOBILITY DECREASED [None]
  - MULTIPLE SCLEROSIS [None]
